FAERS Safety Report 18521383 (Version 1)
Quarter: 2020Q4

REPORT INFORMATION
  Report Type: Spontaneous
  Country: US (occurrence: US)
  Receive Date: 20201118
  Receipt Date: 20201118
  Transmission Date: 20210114
  Serious: No
  Sender: FDA-Public Use
  Company Number: None

PATIENT
  Age: 37 Year
  Sex: Female

DRUGS (2)
  1. EPOPROSTENOL SOD/STERILE DIL [Suspect]
     Active Substance: EPOPROSTENOL SODIUM
     Indication: PULMONARY ARTERIAL HYPERTENSION
     Dosage: 37 ML/24 HR
     Route: 042
     Dates: start: 20200729
  2. AMBRISENTAN 10MG ACTAVIS PHARMA [Suspect]
     Active Substance: AMBRISENTAN
     Indication: PULMONARY ARTERIAL HYPERTENSION
     Route: 048
     Dates: start: 20200805

REACTIONS (3)
  - Migraine [None]
  - Product leakage [None]
  - Infection [None]

NARRATIVE: CASE EVENT DATE: 20201022
